FAERS Safety Report 9491917 (Version 1)
Quarter: 2013Q3

REPORT INFORMATION
  Report Type: Report from Study
  Country: US (occurrence: US)
  Receive Date: 20130830
  Receipt Date: 20130830
  Transmission Date: 20140515
  Serious: Yes (Hospitalization)
  Sender: FDA-Public Use
  Company Number: US-ABBOTT-13P-163-1139162-00

PATIENT
  Age: 16 Year
  Sex: Male
  Weight: 59.02 kg

DRUGS (7)
  1. HUMIRA [Suspect]
     Indication: CROHN^S DISEASE
     Dosage: ONCE
     Dates: start: 201306, end: 201306
  2. HUMIRA [Suspect]
     Dates: start: 201306
  3. PENTASA [Concomitant]
     Indication: CROHN^S DISEASE
  4. FLAGYL [Concomitant]
     Indication: PRODUCT USED FOR UNKNOWN INDICATION
  5. PREDNISONE [Concomitant]
     Indication: CROHN^S DISEASE
  6. MULTIVITAMIN [Concomitant]
     Indication: PRODUCT USED FOR UNKNOWN INDICATION
  7. METHOTREXATE [Concomitant]
     Indication: CROHN^S DISEASE

REACTIONS (13)
  - Fatigue [Not Recovered/Not Resolved]
  - Cachexia [Not Recovered/Not Resolved]
  - Abdominal pain [Not Recovered/Not Resolved]
  - Diarrhoea [Not Recovered/Not Resolved]
  - Large intestinal stenosis [Not Recovered/Not Resolved]
  - Drug dose omission [Unknown]
  - Prealbumin decreased [Recovering/Resolving]
  - Red blood cell sedimentation rate increased [Recovered/Resolved]
  - C-reactive protein increased [Recovered/Resolved]
  - Mean cell haemoglobin decreased [Unknown]
  - Haemoglobin decreased [Recovering/Resolving]
  - Anisocytosis [Unknown]
  - Incorrect product storage [Unknown]
